FAERS Safety Report 5417981-X (Version None)
Quarter: 2007Q3

REPORT INFORMATION
  Report Type: 
  Country: None (occurrence: None)
  Receive Date: 20070817
  Receipt Date: 20070813
  Transmission Date: 20080115
  Serious: Yes (Other)
  Sender: FDA-Public Use
  Company Number: SE-AVENTIS-200717417GDDC

PATIENT
  Age: 45 Year
  Sex: Female

DRUGS (7)
  1. TAXOTERE [Suspect]
     Route: 042
     Dates: start: 20060421, end: 20060628
  2. ZOMETA [Suspect]
     Route: 042
     Dates: start: 20060421, end: 20070403
  3. HERCEPTIN [Concomitant]
     Route: 042
     Dates: start: 20060627
  4. XELODA [Concomitant]
     Route: 048
     Dates: start: 20060911, end: 20070314
  5. CETIRIZIN [Concomitant]
     Dosage: DOSE: UNK
  6. ALVEDON [Concomitant]
  7. BETAPRED [Concomitant]

REACTIONS (1)
  - OSTEONECROSIS [None]
